FAERS Safety Report 7106409-X (Version None)
Quarter: 2010Q4

REPORT INFORMATION
  Report Type: 
  Country: None (occurrence: None)
  Receive Date: 20101116
  Receipt Date: 20100511
  Transmission Date: 20110411
  Serious: No
  Sender: FDA-Public Use
  Company Number: US-PFIZER INC-2010038841

PATIENT
  Sex: Female
  Weight: 75.7 kg

DRUGS (4)
  1. TOVIAZ [Suspect]
     Indication: URINARY INCONTINENCE
     Dosage: 4 MG, 1X/DAY
  2. LISINOPRIL [Concomitant]
     Dosage: 30 MG, 1X/DAY
  3. DEPAKOTE [Concomitant]
     Dosage: 1500 MG, 1X/DAY
  4. METFORMIN [Concomitant]
     Dosage: 250 MG, 1X/DAY

REACTIONS (2)
  - MALAISE [None]
  - NAUSEA [None]
